FAERS Safety Report 6250268-4 (Version None)
Quarter: 2009Q2

REPORT INFORMATION
  Report Type: 
  Country: None (occurrence: None)
  Receive Date: 20090626
  Receipt Date: 20090626
  Transmission Date: 20091009
  Serious: Yes (Disabling)
  Sender: FDA-Public Use
  Company Number: None

PATIENT
  Age: 36 Year
  Sex: Female
  Weight: 58.2 kg

DRUGS (1)
  1. ZICAM [Suspect]
     Indication: NASOPHARYNGITIS
     Dosage: 1 SPRAY EA. NOSTRIL ONCE NASALLY
     Route: 045
     Dates: start: 20060101, end: 20061201

REACTIONS (3)
  - ANOSMIA [None]
  - NASAL DISCOMFORT [None]
  - THROAT IRRITATION [None]
